FAERS Safety Report 8171037-4 (Version None)
Quarter: 2012Q1

REPORT INFORMATION
  Report Type: 
  Country: None (occurrence: None)
  Receive Date: 20120228
  Receipt Date: 20120221
  Transmission Date: 20120608
  Serious: Yes (Other)
  Sender: FDA-Public Use
  Company Number: PHEH2012US004298

PATIENT
  Sex: Female

DRUGS (10)
  1. ZOCOR [Concomitant]
  2. DIOVAN [Suspect]
     Indication: BLOOD PRESSURE
     Dosage: 300 MG, DAILY
  3. ANTIHYPERTENSIVES [Suspect]
     Indication: BLOOD PRESSURE
     Dosage: UNK
  4. PROTONIX [Concomitant]
  5. PROPRANOLOL [Concomitant]
  6. HYDROCONONE / TYLENOL [Concomitant]
     Dosage: UNK
  7. TRICOR [Concomitant]
  8. NORVASC [Suspect]
     Indication: BLOOD PRESSURE
     Dosage: 10 MG, DAILY
  9. CYMBALTA [Concomitant]
  10. VENTOLIN [Concomitant]

REACTIONS (3)
  - CHOKING [None]
  - COUGH [None]
  - SWELLING [None]
